FAERS Safety Report 17304712 (Version 2)
Quarter: 2020Q3

REPORT INFORMATION
  Report Type: Report from Study
  Country: AT (occurrence: AT)
  Receive Date: 20200122
  Receipt Date: 20200218
  Transmission Date: 20201105
  Serious: Yes (Hospitalization)
  Sender: FDA-Public Use
  Company Number: AT-ALEXION PHARMACEUTICALS INC.-A201915151

PATIENT
  Age: 35 Year
  Sex: Female
  Weight: 64 kg

DRUGS (24)
  1. LASIX [Concomitant]
     Active Substance: FUROSEMIDE
     Indication: OEDEMA
     Dosage: 40 MG, PRN
     Route: 048
     Dates: start: 20170626
  2. BAYPRESS [Concomitant]
     Active Substance: NITRENDIPINE
     Indication: HYPERTENSION
     Dosage: 10 MG, PRN
     Route: 048
     Dates: start: 20180905
  3. ENOXAPARIN [Concomitant]
     Active Substance: ENOXAPARIN
     Indication: THROMBOSIS PROPHYLAXIS
     Dosage: 4000 IU, PRN
     Route: 058
     Dates: start: 20190221
  4. CARVEDILOL. [Concomitant]
     Active Substance: CARVEDILOL
     Indication: HYPERTENSION
     Dosage: 25 MG, PRN
     Route: 048
     Dates: start: 2016
  5. NACL [Concomitant]
     Active Substance: SODIUM CHLORIDE
     Indication: HAEMODIALYSIS
     Dosage: 250 ML, PRN
     Route: 042
     Dates: start: 20180904
  6. MAGNOSOLV [Concomitant]
     Indication: HAEMODIALYSIS
     Dosage: 6.1 G, PRN
     Route: 048
     Dates: start: 20180904
  7. EBRANTIL                           /00631802/ [Concomitant]
     Active Substance: URAPIDIL HYDROCHLORIDE
     Indication: HYPERTENSION
     Dosage: 60 MG, BID
     Route: 048
     Dates: start: 20190208
  8. RAVULIZUMAB. [Suspect]
     Active Substance: RAVULIZUMAB
     Dosage: 3300 MG, UNK
     Route: 042
     Dates: start: 20190723
  9. NOVALGIN (METAMIZOLE SODIUM) [Concomitant]
     Active Substance: METAMIZOLE SODIUM
     Indication: HEADACHE
     Dosage: 500 MG, PRN
     Route: 048
     Dates: start: 20180905
  10. RAVULIZUMAB. [Suspect]
     Active Substance: RAVULIZUMAB
     Dosage: 3300 MG, UNK
     Route: 042
     Dates: start: 20191126
  11. NEPRESOL                           /00007602/ [Concomitant]
     Active Substance: HYDRALAZINE HYDROCHLORIDE
     Indication: HYPERTENSION
     Dosage: 25 MG, PRN
     Route: 048
     Dates: start: 20171011
  12. TRAMAL [Concomitant]
     Active Substance: TRAMADOL
     Indication: MUSCULOSKELETAL PAIN
     Dosage: 500 MG, TID
     Route: 048
     Dates: start: 20190531
  13. PANTOLOC                           /01263204/ [Concomitant]
     Active Substance: PANTOPRAZOLE SODIUM
     Indication: GASTRITIS PROPHYLAXIS
     Dosage: 40 MG, PRN
     Route: 048
     Dates: start: 2017
  14. ARANESP [Concomitant]
     Active Substance: DARBEPOETIN ALFA
     Indication: ANAEMIA
     Dosage: 150 ?G, PRN
     Route: 058
     Dates: start: 20171127
  15. RAVULIZUMAB. [Suspect]
     Active Substance: RAVULIZUMAB
     Indication: ATYPICAL HAEMOLYTIC URAEMIC SYNDROME
     Dosage: 2700 MG, UNK
     Route: 042
     Dates: start: 20170517
  16. RESONIUM [Concomitant]
     Active Substance: SODIUM POLYSTYRENE SULFONATE
     Indication: HYPERKALAEMIA
     Dosage: 14.9 G, PRN
     Route: 048
     Dates: start: 20170507
  17. RESONIUM [Concomitant]
     Active Substance: SODIUM POLYSTYRENE SULFONATE
     Indication: ARTERIOVENOUS FISTULA THROMBOSIS
     Dosage: 1 TBSP, QD
     Route: 048
     Dates: start: 20190918
  18. ACTILYSE [Concomitant]
     Active Substance: ALTEPLASE
     Indication: HAEMODIALYSIS
     Dosage: 2.5 ML, PRN
     Route: 042
     Dates: start: 20180919
  19. FOSRENOL [Concomitant]
     Active Substance: LANTHANUM CARBONATE
     Indication: BLOOD PHOSPHORUS ABNORMAL
     Dosage: 750 MG, TID
     Route: 048
     Dates: start: 20181213
  20. DICLOBENE [Concomitant]
     Active Substance: DICLOFENAC SODIUM
     Indication: MUSCULOSKELETAL PAIN
     Dosage: 1 G, PRN
     Route: 061
     Dates: start: 20190531
  21. THYREX [Concomitant]
     Active Substance: LEVOTHYROXINE SODIUM
     Indication: HYPOTHYROIDISM
     Dosage: 50 ?G, QD
     Route: 048
     Dates: start: 2015
  22. RAVULIZUMAB. [Suspect]
     Active Substance: RAVULIZUMAB
     Dosage: 3300 MG, UNK
     Route: 042
     Dates: start: 20190919
  23. LISINOPRIL. [Concomitant]
     Active Substance: LISINOPRIL
     Indication: HYPERTENSION
     Dosage: 5 MG, PRN
     Route: 048
     Dates: start: 20170830
  24. BAYPRESS [Concomitant]
     Active Substance: NITRENDIPINE
     Dosage: 10 MG, TID
     Route: 065
     Dates: start: 2019

REACTIONS (1)
  - Shunt thrombosis [Recovered/Resolved]

NARRATIVE: CASE EVENT DATE: 20190918
